FAERS Safety Report 21109239 (Version 2)
Quarter: 2022Q3

REPORT INFORMATION
  Report Type: Report from Study
  Country: JP (occurrence: JP)
  Receive Date: 20220721
  Receipt Date: 20220803
  Transmission Date: 20221027
  Serious: No
  Sender: FDA-Public Use
  Company Number: JP-INSMED, INC.-2022-00014-JP

PATIENT
  Age: 73 Year
  Sex: Female

DRUGS (1)
  1. ARIKAYCE [Suspect]
     Active Substance: AMIKACIN
     Indication: Product used for unknown indication
     Dosage: UNK
     Route: 055
     Dates: start: 20211216

REACTIONS (4)
  - Cough [Unknown]
  - Malaise [Unknown]
  - Dyspnoea [Not Recovered/Not Resolved]
  - Accidental underdose [Unknown]
